FAERS Safety Report 5156659-7 (Version None)
Quarter: 2006Q4

REPORT INFORMATION
  Report Type: 
  Country: None (occurrence: None)
  Receive Date: 20061115
  Receipt Date: 20061103
  Transmission Date: 20070319
  Serious: Yes (Hospitalization)
  Sender: FDA-Public Use
  Company Number: 146976USA

PATIENT
  Age: 65 Year
  Sex: Female
  Weight: 116.1208 kg

DRUGS (4)
  1. METFORMIN HYDROCHLORIDE [Suspect]
     Indication: DIABETES MELLITUS
     Dosage: 500 MG (500 MG, ONCE A DAY), ORAL
     Route: 048
     Dates: start: 20060601, end: 20060701
  2. VALSARTAN [Suspect]
     Indication: HYPERTENSION
     Dosage: 160MG/25, 2 TABLETS, ORAL
     Route: 048
     Dates: start: 20060601
  3. POTASSIUM CHLORIDE [Concomitant]
  4. GLIPIZIDE [Concomitant]

REACTIONS (11)
  - CHEST PAIN [None]
  - COUGH [None]
  - EYE DISCHARGE [None]
  - EYE DISORDER [None]
  - EYE SWELLING [None]
  - MUSCULOSKELETAL PAIN [None]
  - NON-CARDIAC CHEST PAIN [None]
  - PAIN IN EXTREMITY [None]
  - SCLERAL HAEMORRHAGE [None]
  - SPINAL OSTEOARTHRITIS [None]
  - VISION BLURRED [None]
